FAERS Safety Report 26070083 (Version 1)
Quarter: 2025Q4

REPORT INFORMATION
  Report Type: Spontaneous
  Country: US (occurrence: None)
  Receive Date: 20251120
  Receipt Date: 20251120
  Transmission Date: 20260118
  Serious: No
  Sender: Harrow Health
  Company Number: US-HARROW-HAR-2025-US-00392

PATIENT
  Age: 58 Year
  Sex: Female

DRUGS (8)
  1. MAXITROL [Suspect]
     Active Substance: DEXAMETHASONE\NEOMYCIN SULFATE\POLYMYXIN B SULFATE
     Dosage: INSTILL 1 DROP IN THE LEFT EYE 4 TIMES A DAY POST EYE SURGERY.
     Route: 047
     Dates: start: 20250627, end: 20250628
  2. vitamin D B [Concomitant]
  3. LANTUS [Concomitant]
     Active Substance: INSULIN GLARGINE
  4. HUMALOG [Concomitant]
     Active Substance: INSULIN LISPRO
  5. SYNTHROID [Concomitant]
     Active Substance: LEVOTHYROXINE SODIUM
  6. OXCARBAZEPINE [Concomitant]
     Active Substance: OXCARBAZEPINE
  7. FLUVOXAMINE [Concomitant]
     Active Substance: FLUVOXAMINE
  8. ROSUVASTATIN [Concomitant]
     Active Substance: ROSUVASTATIN

REACTIONS (5)
  - Tremor [Recovered/Resolved]
  - Tachycardia [Recovered/Resolved]
  - Affective disorder [Recovered/Resolved]
  - Feeling jittery [Recovered/Resolved]
  - Insomnia [Recovered/Resolved]

NARRATIVE: CASE EVENT DATE: 20250702
